FAERS Safety Report 7432643-5 (Version None)
Quarter: 2011Q2

REPORT INFORMATION
  Report Type: 
  Country: None (occurrence: None)
  Receive Date: 20110422
  Receipt Date: 20110418
  Transmission Date: 20111010
  Serious: Yes (Hospitalization, Other)
  Sender: FDA-Public Use
  Company Number: US-ABBOTT-11P-163-0719552-00

PATIENT
  Sex: Male
  Weight: 72.64 kg

DRUGS (1)
  1. HUMIRA [Suspect]
     Indication: CROHN'S DISEASE
     Dates: start: 20080601, end: 20110412

REACTIONS (9)
  - DRUG INEFFECTIVE [None]
  - PULMONARY GRANULOMA [None]
  - ANAL FISTULA [None]
  - CALCINOSIS [None]
  - EXCESSIVE GRANULATION TISSUE [None]
  - ARTHROPOD BITE [None]
  - HISTOPLASMOSIS [None]
  - LYMPHADENOPATHY [None]
  - MALAISE [None]
